FAERS Safety Report 9440605 (Version 2)
Quarter: 2013Q3

REPORT INFORMATION
  Report Type: Report from Study
  Country: US (occurrence: US)
  Receive Date: 20130805
  Receipt Date: 20130910
  Transmission Date: 20140515
  Serious: Yes (Hospitalization, Other)
  Sender: FDA-Public Use
  Company Number: US-ROCHE-1255656

PATIENT
  Sex: Female

DRUGS (2)
  1. XELODA [Suspect]
     Indication: SQUAMOUS CELL CARCINOMA
     Dosage: ONE WEEK ON, ONE WEEK OFF
     Route: 048
     Dates: end: 2013
  2. GEMZAR [Concomitant]
     Indication: SQUAMOUS CELL CARCINOMA
     Route: 042

REACTIONS (5)
  - Intestinal obstruction [Recovering/Resolving]
  - Pain [Unknown]
  - Gastric cancer [Recovering/Resolving]
  - Necrosis [Unknown]
  - Disease progression [Unknown]
